FAERS Safety Report 13713304 (Version 1)
Quarter: 2017Q3

REPORT INFORMATION
  Report Type: Spontaneous
  Country: GB (occurrence: GB)
  Receive Date: 20170704
  Receipt Date: 20170704
  Transmission Date: 20171127
  Serious: Yes (Hospitalization, Other)
  Sender: FDA-Public Use
  Company Number: GB-ALEMBIC PHARMACUETICALS LIMITED-2017SCAL000563

PATIENT

DRUGS (2)
  1. LEVODOPA [Suspect]
     Active Substance: LEVODOPA
     Indication: PARKINSONISM
     Dosage: UNK
  2. ROPINIROLE HYDROCHLORIDE. [Suspect]
     Active Substance: ROPINIROLE HYDROCHLORIDE
     Indication: PRODUCT USED FOR UNKNOWN INDICATION
     Dosage: UNK

REACTIONS (1)
  - Acute psychosis [Recovering/Resolving]
